FAERS Safety Report 12863766 (Version 6)
Quarter: 2017Q2

REPORT INFORMATION
  Report Type: Report from Study
  Country: None (occurrence: DE)
  Receive Date: 20161019
  Receipt Date: 20170505
  Transmission Date: 20170830
  Serious: Yes (Hospitalization)
  Sender: FDA-Public Use
  Company Number: DE-ABBVIE-16K-062-1681177-00

PATIENT
  Age: 28 Year
  Sex: Female
  Weight: 60 kg

DRUGS (8)
  1. HUMIRA [Suspect]
     Active Substance: ADALIMUMAB
     Route: 058
     Dates: start: 201606, end: 2016
  2. HUMIRA [Suspect]
     Active Substance: ADALIMUMAB
     Indication: CROHN^S DISEASE
     Route: 058
     Dates: start: 20160602, end: 20160602
  3. HUMIRA [Suspect]
     Active Substance: ADALIMUMAB
     Route: 058
     Dates: start: 20170306
  4. REMICADE [Interacting]
     Active Substance: INFLIXIMAB
     Indication: PRODUCT USED FOR UNKNOWN INDICATION
  5. HUMIRA [Suspect]
     Active Substance: ADALIMUMAB
     Indication: CROHN^S DISEASE
     Route: 058
     Dates: start: 2016, end: 201611
  6. METOPROLOL. [Suspect]
     Active Substance: METOPROLOL
     Indication: PRODUCT USED FOR UNKNOWN INDICATION
     Route: 065
  7. NEPRESOL [Suspect]
     Active Substance: DIHYDRALAZINE SULFATE
     Indication: PRODUCT USED FOR UNKNOWN INDICATION
     Route: 065
  8. NEPRESOL [Suspect]
     Active Substance: DIHYDRALAZINE SULFATE
     Dosage: DOSE INCREASED
     Route: 065
     Dates: start: 2016, end: 2016

REACTIONS (8)
  - Fatigue [Not Recovered/Not Resolved]
  - Nausea [Recovered/Resolved]
  - Exposure during pregnancy [Unknown]
  - Vertigo [Not Recovered/Not Resolved]
  - Cardiovascular disorder [Recovered/Resolved]
  - Bone pain [Not Recovered/Not Resolved]
  - Heart rate increased [Recovered/Resolved]
  - Live birth [Unknown]

NARRATIVE: CASE EVENT DATE: 2016
